FAERS Safety Report 8496631-2 (Version None)
Quarter: 2012Q3

REPORT INFORMATION
  Report Type: 
  Country: None (occurrence: None)
  Receive Date: 20120709
  Receipt Date: 20120702
  Transmission Date: 20120928
  Serious: Yes (Hospitalization)
  Sender: FDA-Public Use
  Company Number: FR-B.I. PHARMACEUTICALS,INC./RIDGEFIELD-2012-FF-00773FF

PATIENT
  Sex: Female
  Weight: 48 kg

DRUGS (1)
  1. PRADAXA [Suspect]
     Indication: ATRIAL FIBRILLATION
     Dosage: 220 MG
     Route: 048
     Dates: start: 20120308, end: 20120505

REACTIONS (3)
  - SPONTANEOUS HAEMATOMA [None]
  - ARTHRALGIA [None]
  - HAEMOGLOBIN DECREASED [None]
